FAERS Safety Report 8926975 (Version 1)
Quarter: 2012Q4

REPORT INFORMATION
  Report Type: 
  Country: US (occurrence: US)
  Receive Date: 20121127
  Receipt Date: 20121127
  Transmission Date: 20130627
  Serious: No
  Sender: FDA-Public Use
  Company Number: US-BAYER-2012-123240

PATIENT
  Age: 73 Year
  Sex: Female
  Weight: 68.03 kg

DRUGS (7)
  1. ALEVE CAPLET/TABLET,MIDOL EXTENDED RELIEF CAPLET [Suspect]
     Indication: PAIN RELIEF
     Dosage: 2 DF, UNK
     Route: 048
     Dates: start: 201209
  2. BAYER ASPIRIN REGIMEN ADULT LOW STRENGTH [Concomitant]
     Indication: MYOCARDIAL INFARCT PROPHYLAXIS
  3. RYTHMOL [Concomitant]
     Dosage: 2 DF, BID
  4. LIPITOR [Concomitant]
  5. MECLIZINE [Concomitant]
  6. PREVACID [Concomitant]
  7. CALCIUM WITH VITAMIN D [Concomitant]

REACTIONS (3)
  - Incorrect drug administration duration [None]
  - Drug ineffective [None]
  - Overdose [None]
